FAERS Safety Report 5368164-3 (Version None)
Quarter: 2007Q2

REPORT INFORMATION
  Report Type: 
  Country: None (occurrence: None)
  Receive Date: 20070625
  Receipt Date: 20070622
  Transmission Date: 20071010
  Serious: Yes (Other)
  Sender: FDA-Public Use
  Company Number: PHNU2007DE02231

PATIENT
  Sex: Male

DRUGS (1)
  1. CLOZAPINE [Suspect]
     Dosage: 200 MG/DAY
     Route: 048
     Dates: start: 19910101

REACTIONS (4)
  - BLOOD CREATININE INCREASED [None]
  - DIABETES MELLITUS [None]
  - GLOMERULONEPHRITIS CHRONIC [None]
  - NEPHRITIS INTERSTITIAL [None]
